FAERS Safety Report 20364085 (Version 1)
Quarter: 2022Q1

REPORT INFORMATION
  Report Type: Spontaneous
  Country: US (occurrence: US)
  Receive Date: 20220121
  Receipt Date: 20220121
  Transmission Date: 20220423
  Serious: Yes (Other)
  Sender: FDA-Public Use
  Company Number: US-BAUSCH-BL-2022-000804

PATIENT
  Age: 2 Year
  Sex: Female

DRUGS (1)
  1. DIAZEPAM [Suspect]
     Active Substance: DIAZEPAM
     Indication: Febrile convulsion
     Dosage: 10 MG DELIVERY SYSTEM SYRINGES
     Route: 054

REACTIONS (3)
  - Device malfunction [Unknown]
  - Product leakage [Unknown]
  - Device signal detection issue [Unknown]
